FAERS Safety Report 8591598-0 (Version None)
Quarter: 2012Q3

REPORT INFORMATION
  Report Type: 
  Country: None (occurrence: None)
  Receive Date: 20120814
  Receipt Date: 20120809
  Transmission Date: 20120928
  Serious: Yes (Other)
  Sender: FDA-Public Use
  Company Number: US-PFIZER INC-2012194846

PATIENT
  Age: 54 Year
  Sex: Male
  Weight: 65.76 kg

DRUGS (4)
  1. CHANTIX [Suspect]
     Indication: SMOKING CESSATION THERAPY
     Dosage: 0.5 MG, 1X/DAY
     Route: 048
     Dates: start: 20120701
  2. CHANTIX [Suspect]
     Dosage: 0.5 MG, 2X/DAY
     Route: 048
  3. CHANTIX [Suspect]
     Dosage: 1 MG, 2X/DAY
     Route: 048
     Dates: end: 20120806
  4. CRESTOR [Concomitant]
     Indication: BLOOD CHOLESTEROL INCREASED
     Dosage: UNK

REACTIONS (12)
  - BLOOD INSULIN INCREASED [None]
  - FEELING ABNORMAL [None]
  - PALPITATIONS [None]
  - BLOOD GLUCOSE DECREASED [None]
  - CARDIAC DISCOMFORT [None]
  - BALANCE DISORDER [None]
  - IRRITABILITY [None]
  - DRUG INEFFECTIVE [None]
  - ANGER [None]
  - FEELING JITTERY [None]
  - NERVOUSNESS [None]
  - DIZZINESS [None]
